FAERS Safety Report 7225656 (Version 3)
Quarter: 2013Q2

REPORT INFORMATION
  Report Type: Spontaneous
  Country: US (occurrence: None)
  Receive Date: 20091203
  Receipt Date: 20130430
  Transmission Date: 20140414
  Serious: Yes (Hospitalization)
  Sender: FDA-Public Use
  Company Number: AUR-APL-2009-01323

PATIENT
  Age: 59 Year
  Sex: Female
  Weight: 113 kg

DRUGS (4)
  1. HYDROCHLOROTHIAZIDE [Suspect]
     Indication: BLOOD PRESSURE INCREASED
     Route: 048
     Dates: start: 20090408, end: 20091008
  2. CELECOXIB; IBUPROFEN; NAPROXEN; PLACEBO [Suspect]
     Indication: OSTEOARTHRITIS
     Route: 048
     Dates: start: 20090422, end: 20091005
  3. CELECOXIB; IBUPROFEN; NAPROXEN; PLACEBO [Suspect]
     Indication: RHEUMATOID ARTHRITIS
     Route: 048
     Dates: start: 20090422, end: 20091005
  4. NEXIUM [Concomitant]

REACTIONS (1)
  - NEPHROLITHIASIS [None]
